FAERS Safety Report 20534546 (Version 1)
Quarter: 2022Q1

REPORT INFORMATION
  Report Type: Report from Study
  Country: MW (occurrence: MW)
  Receive Date: 20220302
  Receipt Date: 20220302
  Transmission Date: 20220423
  Serious: Yes (Other)
  Sender: FDA-Public Use
  Company Number: MW-SUN PHARMACEUTICAL INDUSTRIES LTD-2022R1-327513

PATIENT
  Age: 32 Year
  Sex: Female

DRUGS (2)
  1. NEVIRAPINE [Suspect]
     Active Substance: NEVIRAPINE
     Indication: HIV infection
     Dosage: UNK
     Route: 065
  2. COTRIMOXAZOLE [Suspect]
     Active Substance: SULFAMETHOXAZOLE\TRIMETHOPRIM
     Indication: HIV infection
     Dosage: UNK
     Route: 065

REACTIONS (3)
  - Conjunctivalisation [Unknown]
  - Ulcerative keratitis [Unknown]
  - Eyelid scar [Unknown]
